FAERS Safety Report 18000640 (Version 5)
Quarter: 2020Q4

REPORT INFORMATION
  Report Type: Report from Study
  Country: NL (occurrence: NL)
  Receive Date: 20200709
  Receipt Date: 20201230
  Transmission Date: 20210113
  Serious: Yes (Other)
  Sender: FDA-Public Use
  Company Number: NL-AMGEN-NLDSL2020080519

PATIENT
  Age: 75 Year
  Sex: Male

DRUGS (10)
  1. BECLOMETASONE;FORMOTEROL [Concomitant]
     Active Substance: BECLOMETHASONE\FORMOTEROL
     Indication: CHRONIC OBSTRUCTIVE PULMONARY DISEASE
     Dosage: 200/6UG/DO 120DO I, 2D2DO
  2. BUSERELINE [Concomitant]
     Indication: PROSTATE CANCER
     Dosage: 9.45 MILLIGRAM, Q3MO
  3. CLOPIDOGREL [Concomitant]
     Active Substance: CLOPIDOGREL BISULFATE
     Dosage: 75 MILLIGRAM, QD
  4. TIOTROPIUM [Concomitant]
     Active Substance: TIOTROPIUM
     Dosage: 2,5UG/DO PATR 60DO, QD
  5. XGEVA [Suspect]
     Active Substance: DENOSUMAB
     Dosage: 120 MILLIGRAM (1.7 ML) Q4WK
     Route: 058
     Dates: start: 20200722
  6. HYPROMELLOSE [Concomitant]
     Active Substance: HYPROMELLOSES
     Dosage: 3,2MG/ML FL 10ML 4D1DR WHEN NEEDED
  7. XGEVA [Suspect]
     Active Substance: DENOSUMAB
     Indication: PROPHYLAXIS
     Dosage: 120 MILLIGRAM (1.7 ML) Q4WK
     Route: 058
     Dates: start: 20190624
  8. CALCIUM CARBONATE;COLECALCIFEROL [Concomitant]
     Active Substance: CALCIUM CARBONATE\CHOLECALCIFEROL
     Indication: PROSTATE CANCER
     Dosage: 1,25G/800IE (500MG CA), QD
  9. DEXTRAN 70;HYPROMELLOSE [Concomitant]
     Dosage: 1/3MG/ML FL 15ML, BID
  10. FENOTEROL;IPRATROPIUM [Concomitant]
     Active Substance: FENOTEROL\IPRATROPIUM
     Dosage: 50/20UG/DO 200DO INH, 4D2DO

REACTIONS (2)
  - Pain in jaw [Recovered/Resolved]
  - Osteitis [Not Recovered/Not Resolved]

NARRATIVE: CASE EVENT DATE: 20200301
